APPROVED DRUG PRODUCT: ISOVUE-200
Active Ingredient: IOPAMIDOL
Strength: 41%
Dosage Form/Route: INJECTABLE;INJECTION
Application: N020327 | Product #001
Applicant: BRACCO DIAGNOSTICS INC
Approved: Oct 12, 1994 | RLD: No | RS: No | Type: DISCN